FAERS Safety Report 9512237 (Version 1)
Quarter: 2013Q3

REPORT INFORMATION
  Report Type: Spontaneous
  Country: FR (occurrence: FR)
  Receive Date: 20130910
  Receipt Date: 20130910
  Transmission Date: 20140515
  Serious: Yes (Hospitalization)
  Sender: FDA-Public Use
  Company Number: PHHY2013FR098476

PATIENT
  Age: 39 Year
  Sex: Male

DRUGS (2)
  1. TEGRETOL [Suspect]
     Indication: EPILEPSY
     Dosage: 600 MG, QD
     Route: 048
     Dates: start: 2013, end: 20130810
  2. VALIUM [Concomitant]
     Dosage: UNK UKN, UNK

REACTIONS (1)
  - Cerebellar syndrome [Recovered/Resolved]
